FAERS Safety Report 25564012 (Version 1)
Quarter: 2025Q3

REPORT INFORMATION
  Report Type: Spontaneous
  Country: EU (occurrence: EU)
  Receive Date: 20250716
  Receipt Date: 20250716
  Transmission Date: 20251021
  Serious: Yes (Other)
  Sender: CHEPLAPHARM
  Company Number: None

PATIENT
  Age: 70 Year
  Sex: Male

DRUGS (3)
  1. OLANZAPINE PAMOATE [Suspect]
     Active Substance: OLANZAPINE PAMOATE
     Indication: Psychotic disorder due to a general medical condition
     Dosage: 300 MG EVERY 3 - 4 WEEKS
     Route: 030
     Dates: start: 20240926, end: 20250613
  2. OLANZAPINE PAMOATE [Suspect]
     Active Substance: OLANZAPINE PAMOATE
     Indication: Psychotic disorder due to a general medical condition
     Dosage: 300 MG EVERY 3 - 4 WEEKS
     Route: 030
     Dates: start: 20240926, end: 20250613
  3. VALPROIC ACID [Concomitant]
     Active Substance: VALPROIC ACID
     Indication: Epilepsy
     Dosage: 450 MG X 3, BUT PATIENT ONLY TAKES 300 MG X 2?DAILY DOSE: 600 MILLIGRAM

REACTIONS (4)
  - Post procedural complication [Recovered/Resolved]
  - Restless legs syndrome [Recovered/Resolved]
  - Dyspnoea [Recovered/Resolved]
  - Fall [Unknown]

NARRATIVE: CASE EVENT DATE: 20250613
